FAERS Safety Report 5053684-1 (Version None)
Quarter: 2006Q3

REPORT INFORMATION
  Report Type: 
  Country: None (occurrence: None)
  Receive Date: 20060718
  Receipt Date: 20060309
  Transmission Date: 20061208
  Serious: Yes (Other)
  Sender: FDA-Public Use
  Company Number: JP-ROCHE-439839

PATIENT
  Age: 52 Year
  Sex: Male

DRUGS (19)
  1. CELLCEPT [Suspect]
     Route: 048
     Dates: start: 20020715
  2. CELLCEPT [Suspect]
     Route: 048
  3. CELLCEPT [Suspect]
     Route: 048
     Dates: start: 20041215, end: 20050331
  4. CELLCEPT [Suspect]
     Route: 048
     Dates: start: 20050401, end: 20050621
  5. CELLCEPT [Suspect]
     Route: 048
     Dates: start: 20050622, end: 20050720
  6. PROGRAF [Suspect]
     Route: 048
     Dates: start: 20020515, end: 20051206
  7. PROGRAF [Suspect]
     Route: 048
     Dates: start: 20051207, end: 20060221
  8. PROGRAF [Suspect]
     Route: 048
     Dates: start: 20060222
  9. PREDONINE [Suspect]
     Route: 048
     Dates: start: 20020615
  10. PREDONINE [Suspect]
     Route: 048
     Dates: end: 20050817
  11. PREDONINE [Suspect]
     Route: 048
     Dates: start: 20050818, end: 20050914
  12. ZEFFIX [Concomitant]
     Route: 048
     Dates: start: 20000115, end: 20041215
  13. HEPSERA [Concomitant]
     Route: 048
     Dates: start: 20020315
  14. ZOVIRAX [Concomitant]
     Route: 048
     Dates: start: 20020515, end: 20040415
  15. PARIET [Concomitant]
     Route: 048
     Dates: start: 20020515, end: 20020615
  16. MUCOSTA [Concomitant]
     Route: 048
     Dates: start: 20020515
  17. URSO [Concomitant]
     Route: 048
     Dates: start: 20020515
  18. PERSANTIN [Concomitant]
     Route: 048
     Dates: start: 20020515, end: 20020615
  19. DAONIL [Concomitant]
     Route: 048
     Dates: start: 20020715, end: 20040715

REACTIONS (3)
  - ARTHRALGIA [None]
  - MUSCLE ATROPHY [None]
  - OSTEOPOROSIS [None]
